FAERS Safety Report 6436752-9 (Version None)
Quarter: 2009Q4

REPORT INFORMATION
  Report Type: 
  Country: None (occurrence: None)
  Receive Date: 20091109
  Receipt Date: 20091104
  Transmission Date: 20100525
  Serious: Yes (Death)
  Sender: FDA-Public Use
  Company Number: 20097546

PATIENT
  Sex: Female

DRUGS (1)
  1. LIORESAL [Suspect]
     Indication: MUSCLE SPASTICITY
     Dosage: 260 MCG, DAILY, INTRATHECAL
     Route: 037

REACTIONS (2)
  - NERVOUS SYSTEM DISORDER [None]
  - SUDDEN DEATH [None]
